FAERS Safety Report 9586113 (Version 2)
Quarter: 2013Q4

REPORT INFORMATION
  Report Type: Spontaneous
  Country: US (occurrence: US)
  Receive Date: 20131003
  Receipt Date: 20131008
  Transmission Date: 20140711
  Serious: No
  Sender: FDA-Public Use
  Company Number: US-009507513-1310USA001069

PATIENT
  Sex: Male

DRUGS (1)
  1. LIPTRUZET [Suspect]
     Dosage: 10/10 MG ONE TABLET DAILY
     Route: 048
     Dates: start: 2013, end: 2013

REACTIONS (1)
  - Constipation [Unknown]
